FAERS Safety Report 9508072 (Version 2)
Quarter: 2013Q4

REPORT INFORMATION
  Report Type: Spontaneous
  Country: GB (occurrence: GB)
  Receive Date: 20130909
  Receipt Date: 20131204
  Transmission Date: 20140711
  Serious: Yes (Disabling, Other)
  Sender: FDA-Public Use
  Company Number: PHHY2013GB096080

PATIENT
  Age: 38 Year
  Sex: Female

DRUGS (2)
  1. CITALOPRAM [Suspect]
     Indication: DEPRESSION
     Dosage: 30 MG, DAILY
     Route: 048
  2. CITALOPRAM [Suspect]
     Dosage: 20 MG, DAILY
     Route: 048
     Dates: start: 2010

REACTIONS (3)
  - Hypersexuality [Recovered/Resolved]
  - Pain [Recovered/Resolved]
  - Orgasm abnormal [Recovered/Resolved]
